FAERS Safety Report 12838966 (Version 1)
Quarter: 2016Q4

REPORT INFORMATION
  Report Type: Spontaneous
  Country: US (occurrence: US)
  Receive Date: 20161012
  Receipt Date: 20161012
  Transmission Date: 20170207
  Serious: No
  Sender: FDA-Public Use
  Company Number: US-PFIZER INC-2016020287

PATIENT
  Age: 70 Year
  Sex: Female
  Weight: 97.51 kg

DRUGS (6)
  1. LYRICA [Suspect]
     Active Substance: PREGABALIN
     Dosage: 100 MG, 3X/DAY
     Route: 048
     Dates: start: 2015
  2. SKELAXIN [Concomitant]
     Active Substance: METAXALONE
     Indication: MUSCLE SPASMS
     Dosage: 800 MG, DAILY
  3. SKELAXIN [Concomitant]
     Active Substance: METAXALONE
     Dosage: 800 MG, 1X/DAY
     Route: 048
  4. SKELAXIN [Concomitant]
     Active Substance: METAXALONE
     Dosage: 800 MG, 1X/DAY
  5. LYRICA [Suspect]
     Active Substance: PREGABALIN
     Indication: NEURALGIA
     Dosage: 100 MG, 3X/DAY
     Dates: start: 201505
  6. PROCARDIA [Concomitant]
     Active Substance: NIFEDIPINE
     Indication: BLOOD PRESSURE ABNORMAL
     Dosage: 30 MG, 1X/DAY
     Route: 048

REACTIONS (1)
  - Weight fluctuation [Unknown]
